FAERS Safety Report 15941620 (Version 1)
Quarter: 2019Q1

REPORT INFORMATION
  Report Type: Spontaneous
  Country: US (occurrence: US)
  Receive Date: 20190208
  Receipt Date: 20190208
  Transmission Date: 20190417
  Serious: No
  Sender: FDA-Public Use
  Company Number: None

PATIENT
  Age: 61 Year
  Sex: Female
  Weight: 68.4 kg

DRUGS (19)
  1. LOSARTAN-HCTZ [Concomitant]
     Active Substance: HYDROCHLOROTHIAZIDE\LOSARTAN
  2. DIVIGEL [Concomitant]
     Active Substance: ESTRADIOL
  3. VITAMIN C [Concomitant]
     Active Substance: ASCORBIC ACID
  4. TRI-MAGNESIUM [Concomitant]
  5. TIROSINT [Concomitant]
     Active Substance: LEVOTHYROXINE SODIUM
  6. ADDERALL XR [Concomitant]
     Active Substance: AMPHETAMINE ASPARTATE\AMPHETAMINE SULFATE\DEXTROAMPHETAMINE SACCHARATE\DEXTROAMPHETAMINE SULFATE
  7. COQ10 [Concomitant]
     Active Substance: UBIDECARENONE
  8. GRASS FED COLLAGEN POWDER [Concomitant]
  9. BUSPAR [Concomitant]
     Active Substance: BUSPIRONE HYDROCHLORIDE
  10. CINNAMON. [Concomitant]
     Active Substance: CINNAMON
  11. 2 TYPES OF PROBIOTICS [Concomitant]
  12. ZINC. [Concomitant]
     Active Substance: ZINC
  13. VITAMIN B12 [Concomitant]
     Active Substance: CYANOCOBALAMIN
  14. FOLATE [Concomitant]
     Active Substance: FOLATE SODIUM
  15. OMEGA 3 [Concomitant]
     Active Substance: OMEGA-3 FATTY ACIDS
  16. ATORVASTATIN 20 MG [Suspect]
     Active Substance: ATORVASTATIN
     Indication: BLOOD CHOLESTEROL INCREASED
     Dosage: ?          QUANTITY:30 TABLET(S);?
     Route: 048
     Dates: start: 20181116, end: 20190116
  17. D-3 [Concomitant]
     Active Substance: CHOLECALCIFEROL
  18. CYTOMEL [Concomitant]
     Active Substance: LIOTHYRONINE SODIUM
  19. PROMETRIUM [Concomitant]
     Active Substance: PROGESTERONE

REACTIONS (5)
  - Memory impairment [None]
  - Emotional poverty [None]
  - Weight increased [None]
  - Fatigue [None]
  - Aphasia [None]

NARRATIVE: CASE EVENT DATE: 20190116
